FAERS Safety Report 10417601 (Version 1)
Quarter: 2014Q3

REPORT INFORMATION
  Report Type: Spontaneous
  Country: US (occurrence: None)
  Receive Date: 20140828
  Receipt Date: 20140828
  Transmission Date: 20150326
  Serious: Yes (Death)
  Sender: FDA-Public Use
  Company Number: None

PATIENT
  Age: 66 Year
  Sex: Female
  Weight: 69.4 kg

DRUGS (13)
  1. ONDANSETRON (ZOFRAN) [Concomitant]
  2. ZANAFLEX [Concomitant]
     Active Substance: TIZANIDINE HYDROCHLORIDE
  3. MACROBID [Suspect]
     Active Substance: NITROFURANTOIN\NITROFURANTOIN MONOHYDRATE
     Indication: URINARY TRACT INFECTION
     Route: 048
     Dates: start: 20140626, end: 20140702
  4. ATENOLOL (TENORMIN) [Concomitant]
  5. FLOMAX [Concomitant]
     Active Substance: TAMSULOSIN HYDROCHLORIDE
  6. OXYCODONE (ROXICODONE) [Concomitant]
  7. ESTROGRENS, CONJUGATED (PREMARIN VAGL) [Concomitant]
  8. OXYGEN. [Concomitant]
     Active Substance: OXYGEN
  9. SIMVASTATIN (ZOCOR) [Concomitant]
  10. LIDOCAINE (LIDODERM) [Concomitant]
  11. PANTOPRAZOLE (PROTONIX) [Concomitant]
  12. DENOSUMAB (PROLIA) [Concomitant]
  13. MORPHINE (MSIR) [Concomitant]

REACTIONS (4)
  - Antineutrophil cytoplasmic antibody positive [None]
  - Pneumonitis [None]
  - General physical health deterioration [None]
  - Respiratory failure [None]

NARRATIVE: CASE EVENT DATE: 20140704
